FAERS Safety Report 18228668 (Version 1)
Quarter: 2020Q3

REPORT INFORMATION
  Report Type: Spontaneous
  Country: US (occurrence: US)
  Receive Date: 20200903
  Receipt Date: 20200903
  Transmission Date: 20201103
  Serious: Yes (Hospitalization)
  Sender: FDA-Public Use
  Company Number: None

PATIENT
  Age: 51 Year
  Sex: Female

DRUGS (7)
  1. PERCOCET [Concomitant]
     Active Substance: ACETAMINOPHEN\OXYCODONE HYDROCHLORIDE
  2. HORIZANT [Concomitant]
     Active Substance: GABAPENTIN ENACARBIL
  3. XELJANZ [Suspect]
     Active Substance: TOFACITINIB CITRATE
     Indication: PRODUCT USED FOR UNKNOWN INDICATION
     Route: 048
     Dates: start: 20200624
  4. METHOTREXATE. [Concomitant]
     Active Substance: METHOTREXATE
  5. VITAMIN D3 [Concomitant]
     Active Substance: CHOLECALCIFEROL
  6. CORTISONE [Concomitant]
     Active Substance: CORTISONE
  7. LYRICA [Concomitant]
     Active Substance: PREGABALIN

REACTIONS (2)
  - Cartilage operation [None]
  - Chondroplasty [None]

NARRATIVE: CASE EVENT DATE: 20200708
